FAERS Safety Report 13564397 (Version 1)
Quarter: 2017Q2

REPORT INFORMATION
  Report Type: Spontaneous
  Country: US (occurrence: US)
  Receive Date: 20170519
  Receipt Date: 20170519
  Transmission Date: 20170830
  Serious: No
  Sender: FDA-Public Use
  Company Number: US-PFIZER INC-2017212774

PATIENT
  Age: 33 Year
  Sex: Male
  Weight: 72.57 kg

DRUGS (1)
  1. REVATIO [Suspect]
     Active Substance: SILDENAFIL CITRATE
     Indication: LUNG DISORDER
     Dosage: 20 MG TABLET, 2 TABLETS THREE TIMES PER DAY

REACTIONS (2)
  - Cough [Not Recovered/Not Resolved]
  - Product use issue [Unknown]
